FAERS Safety Report 25933243 (Version 1)
Quarter: 2025Q4

REPORT INFORMATION
  Report Type: Spontaneous
  Country: US (occurrence: US)
  Receive Date: 20251017
  Receipt Date: 20251017
  Transmission Date: 20260118
  Serious: Yes (Hospitalization, Other)
  Sender: CARNEGIE PHARMACEUTICALS LLC
  Company Number: US-CARNEGIE-000081

PATIENT
  Age: 62 Year
  Sex: Female

DRUGS (3)
  1. LEVOFLOXACIN [Concomitant]
     Active Substance: LEVOFLOXACIN
     Indication: Evidence based treatment
     Route: 065
  2. DIMETHYL FUMARATE [Concomitant]
     Active Substance: DIMETHYL FUMARATE
     Indication: Multiple sclerosis
     Route: 065
  3. CLINDAMYCIN PHOSPHATE [Suspect]
     Active Substance: CLINDAMYCIN PHOSPHATE
     Indication: Evidence based treatment
     Route: 065

REACTIONS (3)
  - Dermatitis [Recovered/Resolved]
  - Acute kidney injury [Unknown]
  - Eosinophilia [Unknown]
